FAERS Safety Report 9475109 (Version 1)
Quarter: 2013Q3

REPORT INFORMATION
  Report Type: Report from Study
  Country: FR (occurrence: FR)
  Receive Date: 20130824
  Receipt Date: 20130824
  Transmission Date: 20140515
  Serious: Yes (Hospitalization)
  Sender: FDA-Public Use
  Company Number: FR-ROCHE-1265005

PATIENT
  Sex: Female
  Weight: 68 kg

DRUGS (15)
  1. PEG-INTERFERON ALFA 2A [Suspect]
     Indication: HEPATITIS C
     Route: 058
     Dates: start: 20130409
  2. PEG-INTERFERON ALFA 2A [Suspect]
     Dosage: DOSE REDUCED
     Route: 058
  3. RIBAVIRIN [Suspect]
     Indication: HEPATITIS C
     Route: 048
     Dates: start: 20130409
  4. RIBAVIRIN [Suspect]
     Route: 048
  5. CORTANCYL [Concomitant]
     Indication: INFLAMMATION
     Route: 048
     Dates: start: 201110
  6. NEORAL [Concomitant]
     Indication: PROPHYLAXIS AGAINST TRANSPLANT REJECTION
     Route: 065
     Dates: start: 201110
  7. CELLCEPT [Concomitant]
     Indication: PROPHYLAXIS AGAINST TRANSPLANT REJECTION
     Route: 065
     Dates: start: 201110
  8. NEORECORMON [Concomitant]
     Indication: ANAEMIA
     Route: 065
     Dates: start: 201305
  9. PARIET [Concomitant]
     Indication: GASTRIC ULCER
     Route: 065
  10. LEVOTHYROX [Concomitant]
     Indication: HYPOTHYROIDISM
     Route: 065
  11. AMLOR [Concomitant]
     Indication: HYPERTENSION
     Route: 065
  12. ATORVASTATIN [Concomitant]
     Indication: HYPERCHOLESTEROLAEMIA
     Route: 065
  13. CACIT D3 [Concomitant]
  14. DIFFU K [Concomitant]
  15. ROVALCYTE [Concomitant]
     Route: 065

REACTIONS (1)
  - Transplant rejection [Recovering/Resolving]
